FAERS Safety Report 8545909-2 (Version None)
Quarter: 2012Q3

REPORT INFORMATION
  Report Type: 
  Country: None (occurrence: None)
  Receive Date: 20120727
  Receipt Date: 20111118
  Transmission Date: 20120928
  Serious: No
  Sender: FDA-Public Use
  Company Number: US-ASTRAZENECA-2011SE70606

PATIENT
  Age: 46 Year
  Sex: Male

DRUGS (3)
  1. PROZAC [Concomitant]
  2. TRAZODONE HYDROCHLORIDE [Concomitant]
  3. SEROQUEL [Suspect]
     Route: 048

REACTIONS (7)
  - INSOMNIA [None]
  - EATING DISORDER [None]
  - PALPITATIONS [None]
  - DRUG DOSE OMISSION [None]
  - DEPRESSION [None]
  - FEELING ABNORMAL [None]
  - SOCIAL FEAR [None]
